FAERS Safety Report 6732267-9 (Version None)
Quarter: 2010Q2

REPORT INFORMATION
  Report Type: 
  Country: None (occurrence: None)
  Receive Date: 20100519
  Receipt Date: 20100511
  Transmission Date: 20101027
  Serious: Yes (Hospitalization, Other)
  Sender: FDA-Public Use
  Company Number: B0649561A

PATIENT
  Sex: Female
  Weight: 59 kg

DRUGS (1)
  1. ARIXTRA [Suspect]
     Indication: THROMBOSIS PROPHYLAXIS
     Dosage: 2.5MG PER DAY
     Route: 058
     Dates: start: 20100415, end: 20100416

REACTIONS (2)
  - POST PROCEDURAL HAEMATOMA [None]
  - POSTOPERATIVE WOUND COMPLICATION [None]
